FAERS Safety Report 15835365 (Version 5)
Quarter: 2020Q2

REPORT INFORMATION
  Report Type: Report from Study
  Country: RU (occurrence: RU)
  Receive Date: 20190117
  Receipt Date: 20200430
  Transmission Date: 20200713
  Serious: Yes (Hospitalization)
  Sender: FDA-Public Use
  Company Number: RU-ROCHE-2245341

PATIENT
  Age: 76 Year
  Sex: Male
  Weight: 67 kg

DRUGS (9)
  1. ATEZOLIZUMAB. [Suspect]
     Active Substance: ATEZOLIZUMAB
     Indication: MALIGNANT MELANOMA
     Dosage: ON 27/DEC/2018, HE RECEIVED HIS MOST RECENT DOSE OF ATEZOLIZUMAB (800 MG) PRIOR TO SAE ONSET.
     Route: 042
     Dates: start: 20181004
  2. COBIMETINIB. [Suspect]
     Active Substance: COBIMETINIB
     Indication: MALIGNANT MELANOMA
     Dosage: ON 03/JAN/2019, HE RECEIVED HIS MOST RECENT DOSE OF COBIMETINIB (20 MG) PRIOR TO SAE ONSET.
     Route: 048
     Dates: start: 20181004
  3. LORATADINUM [Concomitant]
     Indication: DERMATITIS ACNEIFORM
     Route: 065
     Dates: start: 20181018, end: 20190924
  4. CHLOROPYRAMINUM [Concomitant]
     Indication: DERMATITIS ACNEIFORM
     Route: 065
     Dates: start: 20181018, end: 20190924
  5. ENALAPRIL [Concomitant]
     Active Substance: ENALAPRIL
     Indication: ESSENTIAL HYPERTENSION
     Route: 065
     Dates: start: 2016
  6. OMNIC [Concomitant]
     Active Substance: TAMSULOSIN HYDROCHLORIDE
     Indication: BENIGN PROSTATIC HYPERPLASIA
     Route: 065
     Dates: start: 2010
  7. HYDROCORTISONE. [Concomitant]
     Active Substance: HYDROCORTISONE
     Indication: DERMATITIS ACNEIFORM
     Route: 065
     Dates: start: 20181018, end: 20190924
  8. METOPROLOL. [Concomitant]
     Active Substance: METOPROLOL
     Indication: ESSENTIAL HYPERTENSION
     Route: 065
     Dates: start: 2016
  9. APIXABAN [Concomitant]
     Active Substance: APIXABAN
     Indication: POST THROMBOTIC SYNDROME
     Route: 065
     Dates: start: 20180911

REACTIONS (1)
  - Seizure [Recovered/Resolved with Sequelae]

NARRATIVE: CASE EVENT DATE: 20190104
